FAERS Safety Report 5704177-7 (Version None)
Quarter: 2008Q2

REPORT INFORMATION
  Report Type: 
  Country: None (occurrence: None)
  Receive Date: 20080409
  Receipt Date: 20080326
  Transmission Date: 20081010
  Serious: Yes (Hospitalization)
  Sender: FDA-Public Use
  Company Number: 2008BI001243

PATIENT
  Age: 46 Year
  Sex: Female
  Weight: 65 kg

DRUGS (5)
  1. AVONEX [Suspect]
     Indication: RELAPSING-REMITTING MULTIPLE SCLEROSIS
     Dosage: 30 UG; QW; IM
     Route: 030
     Dates: start: 20071101
  2. PREGABALIN [Concomitant]
  3. AMITRIPTYLINE HCL [Concomitant]
  4. NACOM RETARD [Concomitant]
  5. SERTRALIN [Concomitant]

REACTIONS (6)
  - GAIT DISTURBANCE [None]
  - GASTRIC DISORDER [None]
  - HYPOAESTHESIA [None]
  - MOVEMENT DISORDER [None]
  - NERVOUS SYSTEM DISORDER [None]
  - SPEECH DISORDER [None]
